FAERS Safety Report 5165415-5 (Version None)
Quarter: 2006Q4

REPORT INFORMATION
  Report Type: 
  Country: None (occurrence: None)
  Receive Date: 20061206
  Receipt Date: 20061115
  Transmission Date: 20070319
  Serious: Yes (Hospitalization, Other)
  Sender: FDA-Public Use
  Company Number: PHBS2006JP17922

PATIENT
  Age: 8 Year
  Sex: Male
  Weight: 42 kg

DRUGS (1)
  1. CYCLOSPORINE [Suspect]
     Indication: NEPHROTIC SYNDROME
     Route: 065
     Dates: start: 20040301

REACTIONS (19)
  - BLOOD ALBUMIN DECREASED [None]
  - BLOOD CHOLESTEROL INCREASED [None]
  - BLOOD CREATININE INCREASED [None]
  - BLOOD UREA INCREASED [None]
  - DISEASE RECURRENCE [None]
  - EYE PAIN [None]
  - EYELID OEDEMA [None]
  - GENERALISED OEDEMA [None]
  - MALAISE [None]
  - NEPHROTIC SYNDROME [None]
  - OEDEMA PERIPHERAL [None]
  - OLIGURIA [None]
  - PERITONEAL DIALYSIS [None]
  - PROTEINURIA [None]
  - RENAL FAILURE ACUTE [None]
  - REVERSIBLE POSTERIOR LEUKOENCEPHALOPATHY SYNDROME [None]
  - VISUAL ACUITY REDUCED [None]
  - VOMITING [None]
  - WEIGHT INCREASED [None]
